FAERS Safety Report 8415683-9 (Version None)
Quarter: 2012Q2

REPORT INFORMATION
  Report Type: 
  Country: None (occurrence: None)
  Receive Date: 20120606
  Receipt Date: 20120528
  Transmission Date: 20120825
  Serious: Yes (Hospitalization, Other)
  Sender: FDA-Public Use
  Company Number: PHHY2012BR037206

PATIENT
  Sex: Female

DRUGS (5)
  1. RASILEZ [Suspect]
     Indication: RENAL DISORDER
     Dosage: 1 DF, DAY
     Dates: start: 20120301
  2. ASPIRIN [Concomitant]
  3. ISOSORBIDE MONONITRATE [Concomitant]
  4. CLOPIDOGREL [Concomitant]
  5. ATORVASTATIN CALCIUM [Concomitant]

REACTIONS (6)
  - CARDIAC DISORDER [None]
  - VEIN DISORDER [None]
  - CARDIOVASCULAR DISORDER [None]
  - TACHYCARDIA [None]
  - VENOUS OCCLUSION [None]
  - INFARCTION [None]
